FAERS Safety Report 16369223 (Version 1)
Quarter: 2019Q2

REPORT INFORMATION
  Report Type: Report from Study
  Country: US (occurrence: US)
  Receive Date: 20190529
  Receipt Date: 20190529
  Transmission Date: 20190711
  Serious: Yes (Hospitalization)
  Sender: FDA-Public Use
  Company Number: US-EXELIXIS-CABO-19021392

PATIENT
  Sex: Male

DRUGS (16)
  1. AVAPRO [Concomitant]
     Active Substance: IRBESARTAN
  2. LEVOTHYROXINE. [Concomitant]
     Active Substance: LEVOTHYROXINE
  3. TOUJEO [Concomitant]
     Active Substance: INSULIN GLARGINE
  4. TAMSULOSIN [Concomitant]
     Active Substance: TAMSULOSIN
  5. CABOMETYX [Suspect]
     Active Substance: CABOZANTINIB S-MALATE
     Indication: RENAL CANCER
     Dosage: 20 MG, QD
     Route: 048
     Dates: start: 20180721
  6. AMLODIPINE [Concomitant]
     Active Substance: AMLODIPINE BESYLATE
  7. PLAVIX [Concomitant]
     Active Substance: CLOPIDOGREL BISULFATE
  8. RANEXA [Concomitant]
     Active Substance: RANOLAZINE
  9. ESCITALOPRAM [Concomitant]
     Active Substance: ESCITALOPRAM OXALATE
  10. HUMALOG [Concomitant]
     Active Substance: INSULIN LISPRO
  11. HYDROCHLOROTHIAZIDE. [Concomitant]
     Active Substance: HYDROCHLOROTHIAZIDE
  12. ZOCOR [Concomitant]
     Active Substance: SIMVASTATIN
  13. ELIQUIS [Concomitant]
     Active Substance: APIXABAN
  14. METOPROLOL. [Concomitant]
     Active Substance: METOPROLOL
  15. OXYCODONE [Concomitant]
     Active Substance: OXYCODONE
  16. PRAVASTATIN. [Concomitant]
     Active Substance: PRAVASTATIN

REACTIONS (2)
  - Pneumonia [Unknown]
  - Bile duct obstruction [Unknown]
